FAERS Safety Report 13888125 (Version 1)
Quarter: 2017Q3

REPORT INFORMATION
  Report Type: Spontaneous
  Country: GR (occurrence: GR)
  Receive Date: 20170821
  Receipt Date: 20170821
  Transmission Date: 20171127
  Serious: Yes (Hospitalization)
  Sender: FDA-Public Use
  Company Number: GR-TEVA-797739ISR

PATIENT
  Age: 70 Year
  Sex: Male

DRUGS (1)
  1. OLMESARTAN MEDOXOMIL/TEVA [Suspect]
     Active Substance: OLMESARTAN MEDOXOMIL
     Indication: HYPERTENSION
     Dosage: RECENTLY PRESCRIBED

REACTIONS (2)
  - Thrombocytopenia [Recovered/Resolved]
  - Haemorrhage intracranial [Unknown]
